FAERS Safety Report 13558551 (Version 1)
Quarter: 2017Q2

REPORT INFORMATION
  Report Type: Report from Study
  Country: US (occurrence: US)
  Receive Date: 20170518
  Receipt Date: 20170518
  Transmission Date: 20170830
  Serious: Yes (Other)
  Sender: FDA-Public Use
  Company Number: US-SA-2016SA118600

PATIENT
  Age: 46 Year
  Sex: Female

DRUGS (1)
  1. LEMTRADA [Suspect]
     Active Substance: ALEMTUZUMAB
     Indication: MULTIPLE SCLEROSIS
     Route: 041
     Dates: start: 20160516, end: 20160520

REACTIONS (16)
  - Condition aggravated [Not Recovered/Not Resolved]
  - Heart rate increased [Unknown]
  - Pain of skin [Unknown]
  - Trigeminal neuralgia [Not Recovered/Not Resolved]
  - Viral infection [Unknown]
  - Nausea [Not Recovered/Not Resolved]
  - Neurogenic bladder [Not Recovered/Not Resolved]
  - Sensory disturbance [Not Recovered/Not Resolved]
  - Headache [Not Recovered/Not Resolved]
  - Neuralgia [Unknown]
  - Paraesthesia [Not Recovered/Not Resolved]
  - Gait disturbance [Unknown]
  - Dyspnoea [Unknown]
  - Burning sensation [Not Recovered/Not Resolved]
  - Multiple sclerosis relapse [Recovered/Resolved]
  - Fatigue [Unknown]

NARRATIVE: CASE EVENT DATE: 2016
